FAERS Safety Report 4355406-6 (Version None)
Quarter: 2004Q2

REPORT INFORMATION
  Report Type: 
  Country: None (occurrence: None)
  Receive Date: 20040505
  Receipt Date: 20040426
  Transmission Date: 20050107
  Serious: Yes (Hospitalization)
  Sender: FDA-Public Use
  Company Number: 2004209070DE

PATIENT
  Age: 31 Year
  Sex: Female

DRUGS (4)
  1. AZULFIDINE [Suspect]
     Indication: ARTHROPATHY
     Dosage: BID
     Dates: start: 20040320
  2. MARCUMAR [Suspect]
     Indication: DEEP VEIN THROMBOSIS
     Dosage: ORAL
     Route: 048
     Dates: start: 20040402
  3. PREDNISOLONE [Concomitant]
  4. DURAGESIC [Concomitant]

REACTIONS (2)
  - DRUG INTERACTION [None]
  - PROTHROMBIN TIME PROLONGED [None]
